FAERS Safety Report 4556486-5 (Version None)
Quarter: 2005Q1

REPORT INFORMATION
  Report Type: 
  Country: None (occurrence: None)
  Receive Date: 20050118
  Receipt Date: 20050105
  Transmission Date: 20050727
  Serious: Yes (Other)
  Sender: FDA-Public Use
  Company Number: 2004-BP-09811BP

PATIENT
  Age: 43 Year
  Sex: Male

DRUGS (2)
  1. MIRAPEX [Suspect]
     Indication: PARKINSON'S DISEASE
     Dosage: PO
     Route: 048
     Dates: start: 20020101, end: 20041001
  2. SINEMET [Concomitant]

REACTIONS (2)
  - ABNORMAL BEHAVIOUR [None]
  - GAMBLING [None]
